FAERS Safety Report 4471584-2 (Version None)
Quarter: 2004Q4

REPORT INFORMATION
  Report Type: 
  Country: None (occurrence: None)
  Receive Date: 20041012
  Receipt Date: 20040802
  Transmission Date: 20050328
  Serious: Yes (Hospitalization)
  Sender: FDA-Public Use
  Company Number: JP-GLAXOSMITHKLINE-B0341668A

PATIENT
  Age: 40 Year
  Sex: Male
  Weight: 56 kg

DRUGS (8)
  1. SEREVENT [Suspect]
     Indication: ASTHMA
     Dosage: 50MCG TWICE PER DAY
     Dates: start: 20031224, end: 20040604
  2. FLUTIDE DISKUS [Suspect]
     Indication: ASTHMA
     Dosage: 200MCG PER DAY
     Route: 055
     Dates: start: 20000901
  3. HOKUNALIN [Suspect]
     Indication: ASTHMA
     Dosage: 2MG PER DAY
     Route: 062
     Dates: start: 20001030, end: 20040609
  4. THEOLONG [Suspect]
     Dosage: 200MCG TWICE PER DAY
     Route: 048
     Dates: start: 19991001
  5. BECOTIDE [Concomitant]
     Dosage: 400MCG PER DAY
     Route: 055
     Dates: start: 20000101, end: 20000901
  6. PREDONINE [Concomitant]
     Route: 048
     Dates: start: 20000901, end: 20000101
  7. PROCATEROL HCL [Concomitant]
  8. SERATRODAST [Concomitant]
     Dates: end: 20031224

REACTIONS (11)
  - BLOOD BICARBONATE INCREASED [None]
  - BLOOD CREATINE PHOSPHOKINASE INCREASED [None]
  - BLOOD PH INCREASED [None]
  - HYPOCHLORAEMIA [None]
  - HYPOKALAEMIA [None]
  - HYPONATRAEMIA [None]
  - MALAISE [None]
  - METABOLIC ALKALOSIS [None]
  - MUSCULOSKELETAL STIFFNESS [None]
  - RENIN INCREASED [None]
  - VOMITING [None]
